FAERS Safety Report 10062777 (Version 2)
Quarter: 2014Q2

REPORT INFORMATION
  Report Type: Report from Study
  Country: US (occurrence: US)
  Receive Date: 20140407
  Receipt Date: 20140407
  Transmission Date: 20141212
  Serious: Yes (Other)
  Sender: FDA-Public Use
  Company Number: US-BAYER-2014-037622

PATIENT
  Age: 59 Year
  Sex: Female

DRUGS (6)
  1. BETASERON [Suspect]
     Indication: RELAPSING-REMITTING MULTIPLE SCLEROSIS
     Dosage: UNK
     Dates: start: 20050318, end: 20060128
  2. BETASERON [Suspect]
     Indication: RELAPSING-REMITTING MULTIPLE SCLEROSIS
     Dosage: UNK
     Dates: start: 20060227, end: 20130129
  3. BETASERON [Suspect]
     Indication: RELAPSING-REMITTING MULTIPLE SCLEROSIS
     Dosage: 6 MIU, QOD
     Route: 058
     Dates: start: 20140207, end: 20140319
  4. TOPAMAX [Concomitant]
  5. BACLOFEN [Concomitant]
  6. METHOCARBAMOL [Concomitant]

REACTIONS (2)
  - Multiple sclerosis relapse [Not Recovered/Not Resolved]
  - Migraine [None]
